FAERS Safety Report 5035477-4 (Version None)
Quarter: 2006Q2

REPORT INFORMATION
  Report Type: 
  Country: None (occurrence: None)
  Receive Date: 20060622
  Receipt Date: 20060609
  Transmission Date: 20061013
  Serious: Yes (Death)
  Sender: FDA-Public Use
  Company Number: A-CH2006-11883

PATIENT
  Age: 53 Year
  Sex: Female

DRUGS (11)
  1. TRACLEER [Suspect]
     Indication: PULMONARY HYPERTENSION
     Dosage: SEE IMAGE
     Route: 048
     Dates: start: 20010401, end: 20010501
  2. TRACLEER [Suspect]
     Indication: PULMONARY HYPERTENSION
     Dosage: SEE IMAGE
     Route: 048
     Dates: start: 20010501, end: 20060325
  3. SILDENAFIL CITRATE [Suspect]
     Dosage: 25 MG, TID, ORAL
     Route: 048
     Dates: start: 20060120
  4. ALTI-DILTIAZEM (DILTIAZEM HYDROCHLORIDE) [Concomitant]
  5. BUMETANIDE [Concomitant]
  6. AMILORIDE (AMILORIDE) [Concomitant]
  7. QUININE SULFATE [Concomitant]
  8. SPIRONONE MICROFINE (SPIRONOLACTONE) [Concomitant]
  9. IMMUNE GLOBULIN INTRAVENOUS (HUMAN) [Concomitant]
  10. LEVOTHYROXINE SODIUM [Concomitant]
  11. ZOPICLONE (ZOPICLONE) [Concomitant]

REACTIONS (9)
  - DRUG INEFFECTIVE [None]
  - EPSTEIN-BARR VIRUS ANTIBODY POSITIVE [None]
  - GENERAL PHYSICAL HEALTH DETERIORATION [None]
  - HEPATIC FAILURE [None]
  - HEPATIC TRAUMA [None]
  - HEPATITIS B CORE ANTIGEN POSITIVE [None]
  - HEPATOSPLENOMEGALY [None]
  - MULTI-ORGAN FAILURE [None]
  - RIGHT VENTRICULAR FAILURE [None]
